FAERS Safety Report 5835761-8 (Version None)
Quarter: 2008Q3

REPORT INFORMATION
  Report Type: 
  Country: None (occurrence: None)
  Receive Date: 20080806
  Receipt Date: 20080729
  Transmission Date: 20090109
  Serious: Yes (Other)
  Sender: FDA-Public Use
  Company Number: US-SANOFI-SYNTHELABO-A03200800303

PATIENT
  Age: 27 Year
  Sex: Male

DRUGS (2)
  1. ALCOHOL [Suspect]
     Indication: DRUG USE FOR UNKNOWN INDICATION
     Dosage: UNK
     Route: 048
  2. AMBIEN [Interacting]
     Indication: SLEEP DISORDER
     Dosage: UNK
     Route: 065

REACTIONS (2)
  - AGGRESSION [None]
  - EXHIBITIONISM [None]
